FAERS Safety Report 5986666-3 (Version None)
Quarter: 2008Q4

REPORT INFORMATION
  Report Type: 
  Country: None (occurrence: None)
  Receive Date: 20081209
  Receipt Date: 20081128
  Transmission Date: 20090506
  Serious: Yes (Other)
  Sender: FDA-Public Use
  Company Number: JP-ROCHE-598290

PATIENT
  Sex: Male
  Weight: 39 kg

DRUGS (5)
  1. ROCEPHIN [Suspect]
     Indication: UPPER RESPIRATORY TRACT INFLAMMATION
     Route: 041
     Dates: start: 20081005, end: 20081009
  2. ROCEPHIN [Suspect]
     Route: 041
     Dates: start: 20081010, end: 20081011
  3. KIDMIN [Concomitant]
     Route: 041
     Dates: start: 20081011, end: 20081015
  4. LASIX [Concomitant]
     Dates: start: 20081011, end: 20081011
  5. LASIX [Concomitant]
     Dates: start: 20081012, end: 20081012

REACTIONS (1)
  - RENAL DISORDER [None]
